FAERS Safety Report 16388150 (Version 1)
Quarter: 2019Q2

REPORT INFORMATION
  Report Type: Spontaneous
  Country: US (occurrence: US)
  Receive Date: 20190427
  Receipt Date: 20190427
  Transmission Date: 20190711
  Serious: Yes (Hospitalization)
  Sender: FDA-Public Use
  Company Number: None

PATIENT
  Age: 65 Year
  Sex: Female
  Weight: 80 kg

DRUGS (1)
  1. CISPLATIN. [Suspect]
     Active Substance: CISPLATIN
     Dates: end: 20190325

REACTIONS (5)
  - Meningioma [None]
  - Urinary tract infection [None]
  - Syncope [None]
  - Dehydration [None]
  - Staphylococcal infection [None]

NARRATIVE: CASE EVENT DATE: 20190404
